FAERS Safety Report 8008605-6 (Version None)
Quarter: 2011Q4

REPORT INFORMATION
  Report Type: 
  Country: None (occurrence: None)
  Receive Date: 20111227
  Receipt Date: 20111216
  Transmission Date: 20120403
  Serious: Yes (Hospitalization)
  Sender: FDA-Public Use
  Company Number: US-BAXTER-2011BH039657

PATIENT
  Age: 67 Year
  Sex: Female

DRUGS (2)
  1. DIANEAL [Suspect]
     Indication: PERITONEAL DIALYSIS
     Route: 033
  2. ANTIBIOTIC [Suspect]
     Indication: INFECTION
     Route: 065
     Dates: start: 20111201

REACTIONS (3)
  - INFECTION [None]
  - PERITONITIS BACTERIAL [None]
  - CLOSTRIDIAL INFECTION [None]
